FAERS Safety Report 19220221 (Version 3)
Quarter: 2021Q3

REPORT INFORMATION
  Report Type: Spontaneous
  Country: US (occurrence: US)
  Receive Date: 20210506
  Receipt Date: 20210813
  Transmission Date: 20211014
  Serious: No
  Sender: FDA-Public Use
  Company Number: US-SUN PHARMACEUTICAL INDUSTRIES LTD-2021R1-289111

PATIENT
  Sex: Male
  Weight: 96.05 kg

DRUGS (9)
  1. EPOPROSTENOL. [Suspect]
     Active Substance: EPOPROSTENOL
     Dosage: 17 NG/KG/MIN CONTINUOUS
     Route: 042
     Dates: start: 20210313
  2. EPOPROSTENOL. [Suspect]
     Active Substance: EPOPROSTENOL
     Indication: PULMONARY ARTERIAL HYPERTENSION
     Dosage: 11 NG/KG/MIN CONTINUOUS
     Route: 042
     Dates: start: 20210313
  3. EPOPROSTENOL. [Suspect]
     Active Substance: EPOPROSTENOL
     Dosage: 9 NG/KG/MIN
     Route: 042
     Dates: start: 20210413
  4. TYVASO [Concomitant]
     Active Substance: TREPROSTINIL
     Indication: PRODUCT USED FOR UNKNOWN INDICATION
     Dosage: UNK
     Route: 065
  5. VELETRI [Concomitant]
     Active Substance: EPOPROSTENOL
     Dosage: 9NG/KG/MIN
     Route: 065
     Dates: start: 2021
  6. VELETRI [Concomitant]
     Active Substance: EPOPROSTENOL
     Indication: PRODUCT USED FOR UNKNOWN INDICATION
     Dosage: UNK
     Route: 065
  7. XARELTO [Concomitant]
     Active Substance: RIVAROXABAN
     Indication: PRODUCT USED FOR UNKNOWN INDICATION
     Dosage: UNK
     Route: 065
  8. VELETRI [Concomitant]
     Active Substance: EPOPROSTENOL
     Dosage: 8NG/KG/MIN
     Route: 065
     Dates: start: 2021
  9. EPOPROSTENOL. [Suspect]
     Active Substance: EPOPROSTENOL
     Dosage: 9 NG/KG/MIN
     Route: 042
     Dates: start: 20210413

REACTIONS (5)
  - Nausea [Unknown]
  - Malaise [Unknown]
  - Headache [Unknown]
  - Vomiting [Unknown]
  - Product administration error [Unknown]

NARRATIVE: CASE EVENT DATE: 2021
